FAERS Safety Report 7652366-7 (Version None)
Quarter: 2011Q3

REPORT INFORMATION
  Report Type: 
  Country: None (occurrence: None)
  Receive Date: 20110803
  Receipt Date: 20110719
  Transmission Date: 20111222
  Serious: Yes (Death, Hospitalization, Other)
  Sender: FDA-Public Use
  Company Number: CA-ELI_LILLY_AND_COMPANY-CA201107004928

PATIENT
  Sex: Female
  Weight: 85.4 kg

DRUGS (21)
  1. ALPRAZ [Concomitant]
  2. VALPROATE SODIUM [Concomitant]
  3. CLONAZEPAM [Concomitant]
  4. RESTORIL [Concomitant]
  5. VALPROIC ACID [Concomitant]
  6. DIVALPROEX SODIUM [Concomitant]
  7. FLUPAMESONE [Concomitant]
  8. NOZINAN [Concomitant]
  9. ZYPREXA [Suspect]
     Dosage: 10 MG, QD
  10. ZYPREXA [Suspect]
     Dosage: 15 MG, QD
  11. FLUCONAZOLE [Concomitant]
  12. BRIMONIDINE TARTRATE [Concomitant]
  13. ZYPREXA [Suspect]
     Dosage: 2.5 MG, QD
  14. CHLORPROMAZINE [Concomitant]
  15. LITHIUM CARBONATE [Concomitant]
  16. ZYPREXA [Suspect]
     Indication: SCHIZOPHRENIA
     Dosage: 5 MG, QD
  17. RISPERDAL [Concomitant]
  18. RHOVANE [Concomitant]
  19. URISPAS [Concomitant]
  20. LORAZEPAM [Concomitant]
  21. ZYPREXA [Suspect]
     Dosage: 5 MG, QD

REACTIONS (7)
  - WEIGHT INCREASED [None]
  - DEATH [None]
  - ABSCESS NECK [None]
  - DIABETES MELLITUS [None]
  - PHARYNGITIS STREPTOCOCCAL [None]
  - BLOOD TRIGLYCERIDES INCREASED [None]
  - PNEUMONIA [None]
